FAERS Safety Report 10258225 (Version 2)
Quarter: 2014Q3

REPORT INFORMATION
  Report Type: Spontaneous
  Country: US (occurrence: None)
  Receive Date: 20140623
  Receipt Date: 20140703
  Transmission Date: 20150326
  Serious: Yes (Other)
  Sender: FDA-Public Use
  Company Number: UNT-2014-002268

PATIENT
  Age: 39 Year
  Sex: Female
  Weight: 53.5 kg

DRUGS (3)
  1. REVATIO (SILDENAFIL CITRATE) [Concomitant]
  2. REMODULIN [Suspect]
     Active Substance: TREPROSTINIL
     Indication: PULMONARY ARTERIAL HYPERTENSION
     Dosage: CONTINUING
     Route: 058
     Dates: start: 20131105
  3. LETAIRIS [Suspect]
     Active Substance: AMBRISENTAN
     Indication: PRODUCT USED FOR UNKNOWN INDICATION
     Dates: start: 20100916

REACTIONS (9)
  - Abdominal distension [None]
  - Weight increased [None]
  - Infusion site erythema [None]
  - Infusion site pain [None]
  - Oedema [None]
  - Peripheral swelling [None]
  - Infusion site warmth [None]
  - Local swelling [None]
  - Fluid retention [None]
